FAERS Safety Report 7799336-6 (Version None)
Quarter: 2011Q4

REPORT INFORMATION
  Report Type: 
  Country: None (occurrence: None)
  Receive Date: 20111006
  Receipt Date: 20110930
  Transmission Date: 20120403
  Serious: Yes (Hospitalization, Other)
  Sender: FDA-Public Use
  Company Number: GXKR2011DE02758

PATIENT
  Sex: Female
  Weight: 55.1 kg

DRUGS (1)
  1. CLOZAPINE [Suspect]
     Dosage: CA 2000 MG, CA 10 TABLETS ONCE/SINGLE
     Route: 048
     Dates: start: 20110903

REACTIONS (9)
  - BLOOD TEST ABNORMAL [None]
  - SOMNOLENCE [None]
  - TRANSAMINASES INCREASED [None]
  - SUICIDE ATTEMPT [None]
  - OVERDOSE [None]
  - SPEECH DISORDER [None]
  - BLOOD CREATINE PHOSPHOKINASE INCREASED [None]
  - DRUG SCREEN POSITIVE [None]
  - DISORIENTATION [None]
